FAERS Safety Report 6130010-8 (Version None)
Quarter: 2009Q1

REPORT INFORMATION
  Report Type: 
  Country: None (occurrence: None)
  Receive Date: 20090323
  Receipt Date: 20090323
  Transmission Date: 20090719
  Serious: Yes (Other)
  Sender: FDA-Public Use
  Company Number: None

PATIENT
  Age: 77 Year
  Sex: Female
  Weight: 41.7309 kg

DRUGS (1)
  1. AMIODARONE HCL [Suspect]
     Indication: ARRHYTHMIA
     Dosage: 450MG ONCE IV BOLUS
     Route: 040
     Dates: start: 20090203, end: 20090203

REACTIONS (3)
  - ACUTE PSYCHOSIS [None]
  - AGGRESSION [None]
  - DELUSION [None]
